FAERS Safety Report 17486183 (Version 1)
Quarter: 2020Q1

REPORT INFORMATION
  Report Type: Spontaneous
  Country: IT (occurrence: IT)
  Receive Date: 20200303
  Receipt Date: 20200303
  Transmission Date: 20200409
  Serious: Yes (Other)
  Sender: FDA-Public Use
  Company Number: IT-TEVA-2020-IT-1193032

PATIENT
  Age: 15 Year
  Sex: Male
  Weight: 68 kg

DRUGS (1)
  1. METOTRESSATO TEVA 100 MG/ML SOLUZIONE INIETTABILE [Suspect]
     Active Substance: METHOTREXATE SODIUM
     Indication: OSTEOSARCOMA METASTATIC
     Dosage: 10000 MG/M2
     Route: 042
     Dates: start: 20191217, end: 20191217

REACTIONS (1)
  - Drug clearance decreased [Recovered/Resolved]

NARRATIVE: CASE EVENT DATE: 20191217
